FAERS Safety Report 19470131 (Version 3)
Quarter: 2021Q3

REPORT INFORMATION
  Report Type: Spontaneous
  Country: AL (occurrence: AL)
  Receive Date: 20210629
  Receipt Date: 20210718
  Transmission Date: 20211014
  Serious: Yes (Hospitalization)
  Sender: FDA-Public Use
  Company Number: AL-JNJFOC-20210663431

PATIENT
  Age: 67 Year
  Sex: Female

DRUGS (7)
  1. XARELTO [Suspect]
     Active Substance: RIVAROXABAN
     Indication: ATRIAL FIBRILLATION
     Dosage: 20 MG
     Route: 048
     Dates: start: 2017
  2. AMLODIPINE [Concomitant]
     Active Substance: AMLODIPINE BESYLATE
  3. ATORVASTATIN [Concomitant]
     Active Substance: ATORVASTATIN
  4. CLOPIDOGREL [Concomitant]
     Active Substance: CLOPIDOGREL BISULFATE
  5. RAMIPRIL. [Concomitant]
     Active Substance: RAMIPRIL
  6. METOPROLOL. [Concomitant]
     Active Substance: METOPROLOL
  7. ASPRIN [Concomitant]
     Active Substance: ASPIRIN

REACTIONS (2)
  - Acute myocardial infarction [Recovering/Resolving]
  - Angina pectoris [Recovered/Resolved]

NARRATIVE: CASE EVENT DATE: 202102
